FAERS Safety Report 21159997 (Version 1)
Quarter: 2022Q3

REPORT INFORMATION
  Report Type: Spontaneous
  Country: TW (occurrence: None)
  Receive Date: 20220802
  Receipt Date: 20220802
  Transmission Date: 20221027
  Serious: Yes (Hospitalization, Other)
  Sender: FDA-Public Use
  Company Number: TW-Evus Pharmaceuticals, LLC-EPL202207-000074

PATIENT
  Age: 83 Year
  Sex: Male
  Weight: 60 kg

DRUGS (8)
  1. NITROGLYCERIN [Suspect]
     Active Substance: NITROGLYCERIN
     Indication: Pulmonary oedema
     Dosage: 0.6 MG
     Route: 060
  2. FUROSEMIDE [Suspect]
     Active Substance: FUROSEMIDE
     Indication: Pulmonary oedema
     Dosage: 5 MG
     Route: 042
  3. BUPIVACAINE [Concomitant]
     Active Substance: BUPIVACAINE
     Indication: Spinal anaesthesia
     Dosage: 9.5 MG (INTO THE SUBARACHNOID SPACE VIA A 26-GAUGE SPINAL NEEDLE AT THE L3/L4 LEVEL)
     Route: 065
  4. FENTANYL [Concomitant]
     Active Substance: FENTANYL
     Indication: Spinal anaesthesia
     Dosage: 15 MCG (INTO THE SUBARACHNOID SPACE VIA A 26-GAUGE SPINAL NEEDLE AT THE L3/L4 LEVEL)
     Route: 065
  5. FENTANYL [Concomitant]
     Active Substance: FENTANYL
     Indication: Emotional distress
     Dosage: 25 MCG
     Route: 042
  6. MIDAZOLAM [Concomitant]
     Active Substance: MIDAZOLAM
     Indication: Emotional distress
     Dosage: 0.5 MG
     Route: 042
  7. DIGOXIN [Concomitant]
     Active Substance: DIGOXIN
     Indication: Arrhythmia
     Dosage: 0.125 MG
     Route: 042
  8. DOPAMINE [Concomitant]
     Active Substance: DOPAMINE HYDROCHLORIDE
     Indication: Acute myocardial infarction
     Dosage: 5 MCG/KG/MIN
     Route: 042

REACTIONS (3)
  - Hypoxia [Recovering/Resolving]
  - Haemodynamic instability [Recovered/Resolved]
  - Condition aggravated [Recovered/Resolved]
